FAERS Safety Report 12867340 (Version 3)
Quarter: 2017Q2

REPORT INFORMATION
  Report Type: Spontaneous
  Country: US (occurrence: US)
  Receive Date: 20161020
  Receipt Date: 20170628
  Transmission Date: 20170830
  Serious: Yes (Other)
  Sender: FDA-Public Use
  Company Number: US-SAOL THERAPEUTICS-2016SAO00844

PATIENT
  Sex: Male
  Weight: 63.49 kg

DRUGS (5)
  1. MARINOL [Concomitant]
     Active Substance: DRONABINOL
  2. MORPHINE [Suspect]
     Active Substance: MORPHINE
     Dosage: UNK
     Route: 037
     Dates: start: 20111210
  3. BACLOFEN. [Concomitant]
     Active Substance: BACLOFEN
     Dosage: 30 MG, \DAY
     Route: 048
  4. LIORESAL [Suspect]
     Active Substance: BACLOFEN
     Dosage: 37.6 ?G, \DAY
     Route: 037
     Dates: start: 20111012
  5. NORCO [Concomitant]
     Active Substance: ACETAMINOPHEN\HYDROCODONE BITARTRATE

REACTIONS (10)
  - Nausea [Unknown]
  - Therapy non-responder [Unknown]
  - Aortic valve disease [Recovered/Resolved]
  - Back pain [Unknown]
  - Skin test positive [Unknown]
  - Osteoporosis [Unknown]
  - Medical device site pain [Unknown]
  - Dyspnoea [Unknown]
  - Muscular weakness [Unknown]
  - Kyphosis [Unknown]
